FAERS Safety Report 12475189 (Version 2)
Quarter: 2016Q3

REPORT INFORMATION
  Report Type: Spontaneous
  Country: US (occurrence: US)
  Receive Date: 20160617
  Receipt Date: 20160714
  Transmission Date: 20161109
  Serious: No
  Sender: FDA-Public Use
  Company Number: US-PFIZER INC-2016288519

PATIENT
  Age: 68 Year
  Sex: Female
  Weight: 86.18 kg

DRUGS (2)
  1. ADVIL [Suspect]
     Active Substance: IBUPROFEN
     Indication: ARTHRITIS
     Dosage: 200 MG, AS NEEDED
     Dates: start: 20160531, end: 20160601
  2. ADVIL [Suspect]
     Active Substance: IBUPROFEN
     Indication: MYALGIA

REACTIONS (5)
  - Reaction to drug excipients [Recovered/Resolved]
  - Abdominal discomfort [Recovered/Resolved]
  - Sensation of foreign body [Recovered/Resolved]
  - Nausea [Recovered/Resolved]
  - Feeling abnormal [Recovered/Resolved]

NARRATIVE: CASE EVENT DATE: 20160531
